FAERS Safety Report 17070589 (Version 1)
Quarter: 2019Q4

REPORT INFORMATION
  Report Type: Spontaneous
  Country: CA (occurrence: CA)
  Receive Date: 20191125
  Receipt Date: 20191125
  Transmission Date: 20200122
  Serious: Yes (Hospitalization)
  Sender: FDA-Public Use
  Company Number: CA-PFIZER INC-2019498979

PATIENT
  Age: 45 Year
  Sex: Female

DRUGS (2)
  1. APO-METHYLPHENIDATE [Concomitant]
     Dosage: UNK
  2. ERYC [Suspect]
     Active Substance: ERYTHROMYCIN
     Indication: PNEUMONIA
     Dosage: 333 MG, 3X/DAY
     Route: 048

REACTIONS (6)
  - Chills [Recovered/Resolved]
  - Dyspnoea [Recovered/Resolved]
  - Pyrexia [Recovered/Resolved]
  - Vomiting [Recovered/Resolved]
  - Dizziness [Recovered/Resolved]
  - Oral mucosal blistering [Recovered/Resolved]
